FAERS Safety Report 9458018 (Version 1)
Quarter: 2013Q3

REPORT INFORMATION
  Report Type: Spontaneous
  Country: US (occurrence: US)
  Receive Date: 20130814
  Receipt Date: 20130814
  Transmission Date: 20140515
  Serious: No
  Sender: FDA-Public Use
  Company Number: US-MYLANLABS-2013S1004840

PATIENT
  Age: 60 Year
  Sex: Female

DRUGS (1)
  1. PENTOXIFYLLINE ER TABLETS [Suspect]
     Route: 048
     Dates: start: 201301

REACTIONS (2)
  - Diarrhoea [Not Recovered/Not Resolved]
  - Abdominal pain upper [Not Recovered/Not Resolved]
